FAERS Safety Report 11786312 (Version 1)
Quarter: 2015Q4

REPORT INFORMATION
  Report Type: Spontaneous
  Country: CA (occurrence: CA)
  Receive Date: 20151130
  Receipt Date: 20151130
  Transmission Date: 20160305
  Serious: Yes (Other)
  Sender: FDA-Public Use
  Company Number: CA-JNJFOC-20151124431

PATIENT
  Age: 39 Year
  Sex: Female

DRUGS (3)
  1. INVOKANA [Suspect]
     Active Substance: CANAGLIFLOZIN
     Indication: PRODUCT USED FOR UNKNOWN INDICATION
     Dates: start: 201411
  2. INSULIN [Concomitant]
     Active Substance: INSULIN NOS
     Dosage: THE PATIENT WAS PUT ON INSULIN PUMP DURING THE SECOND PREGNANCY.
     Dates: start: 2011
  3. VICTOZA [Concomitant]
     Active Substance: LIRAGLUTIDE
     Dosage: DOSE 1.8 (UNITS UNSPECIFIED)
     Route: 065

REACTIONS (2)
  - Ovarian abscess [Unknown]
  - Diabetic ketoacidosis [Unknown]

NARRATIVE: CASE EVENT DATE: 20151123
